FAERS Safety Report 5659077-8 (Version None)
Quarter: 2008Q1

REPORT INFORMATION
  Report Type: 
  Country: None (occurrence: None)
  Receive Date: 20080310
  Receipt Date: 20080102
  Transmission Date: 20080703
  Serious: No
  Sender: FDA-Public Use
  Company Number: US-BAYER-200810069BCC

PATIENT
  Age: 58 Year
  Sex: Female
  Weight: 86 kg

DRUGS (5)
  1. ALEVE [Suspect]
     Indication: ARTHRALGIA
     Dosage: UNIT DOSE: 220 MG
     Route: 048
     Dates: start: 20070901, end: 20080102
  2. VYTORIN [Concomitant]
  3. NEURONTIN [Concomitant]
  4. HYDROCHLOROTHIAZIDE [Concomitant]
  5. TRAZODONE HCL [Concomitant]

REACTIONS (1)
  - STOMACH DISCOMFORT [None]
